FAERS Safety Report 12780566 (Version 1)
Quarter: 2016Q3

REPORT INFORMATION
  Report Type: Spontaneous
  Country: JP (occurrence: JP)
  Receive Date: 20160926
  Receipt Date: 20160926
  Transmission Date: 20161109
  Serious: Yes (Hospitalization, Other)
  Sender: FDA-Public Use
  Company Number: JP-BAYER-2016-180217

PATIENT
  Age: 38 Year
  Sex: Female
  Weight: 53.3 kg

DRUGS (1)
  1. BAYASPIRIN [Suspect]
     Active Substance: ASPIRIN
     Indication: ANTICOAGULANT THERAPY
     Dosage: UNK
     Route: 048

REACTIONS (11)
  - Pyrexia [None]
  - C-reactive protein increased [None]
  - Fibrin D dimer increased [None]
  - Ventricular fibrillation [None]
  - Acute myocardial infarction [None]
  - Coronary artery dissection [None]
  - Foetal death [None]
  - Sputum increased [None]
  - Vascular stent restenosis [None]
  - Maternal exposure during pregnancy [Recovered/Resolved]
  - Left ventricular dysfunction [None]
